FAERS Safety Report 11113721 (Version 1)
Quarter: 2015Q2

REPORT INFORMATION
  Report Type: Spontaneous
  Country: US (occurrence: US)
  Receive Date: 20150514
  Receipt Date: 20150514
  Transmission Date: 20150821
  Serious: Yes (Other)
  Sender: FDA-Public Use
  Company Number: US-GLAXOSMITHKLINE-US2015GSK064736

PATIENT
  Sex: Male

DRUGS (1)
  1. FLOVENT [Suspect]
     Active Substance: FLUTICASONE PROPIONATE
     Indication: LUNG DISORDER

REACTIONS (3)
  - Cough [Unknown]
  - Macular degeneration [Unknown]
  - Secretion discharge [Unknown]

NARRATIVE: CASE EVENT DATE: 2013
